FAERS Safety Report 11239116 (Version 1)
Quarter: 2015Q3

REPORT INFORMATION
  Report Type: Spontaneous
  Country: US (occurrence: None)
  Receive Date: 20150701
  Receipt Date: 20150701
  Transmission Date: 20151125
  Serious: Yes (Hospitalization)
  Sender: FDA-Public Use
  Company Number: None

PATIENT
  Age: 90 Year
  Sex: Female
  Weight: 53.52 kg

DRUGS (1)
  1. NITROFURANTOIN .... MCR DISP. BY P. JOHNSON MFG. ALVOGEN INC. [Suspect]
     Active Substance: NITROFURANTOIN
     Indication: CYSTITIS
     Dosage: BY MOUTH
     Dates: start: 20150530, end: 20150530

REACTIONS (2)
  - Nervousness [None]
  - Tremor [None]

NARRATIVE: CASE EVENT DATE: 20150530
